FAERS Safety Report 4400942-7 (Version None)
Quarter: 2004Q3

REPORT INFORMATION
  Report Type: 
  Country: None (occurrence: None)
  Receive Date: 20040907
  Receipt Date: 20030819
  Transmission Date: 20050211
  Serious: No
  Sender: FDA-Public Use
  Company Number: US-BRISTOL-MYERS SQUIBB COMPANY-12359733

PATIENT
  Age: 47 Year
  Sex: Female

DRUGS (12)
  1. COUMADIN [Suspect]
     Indication: ANTIPHOSPHOLIPID SYNDROME
     Dosage: DOSE VALUE:  7.5 MG FOR 6 DAYS, ALTERNATING WITH 5 MG FOR ONE DAY.
     Route: 048
  2. ENTOCORT EC [Interacting]
     Dates: start: 20030801
  3. NIACIN [Concomitant]
  4. GLUCOSAMINE+CHONDROITIN+MSM [Concomitant]
  5. AZATHIOPRINE [Concomitant]
  6. PROPRANOLOL [Concomitant]
  7. TRAMADOL [Concomitant]
  8. HORSE CHESTNUT EXTRACT [Concomitant]
  9. ARGININE [Concomitant]
  10. PAXIL [Concomitant]
  11. SEROQUEL [Concomitant]
  12. NEXIUM [Concomitant]

REACTIONS (3)
  - CONTUSION [None]
  - DRUG INTERACTION [None]
  - INTERNATIONAL NORMALISED RATIO INCREASED [None]
